FAERS Safety Report 15231188 (Version 1)
Quarter: 2018Q3

REPORT INFORMATION
  Report Type: Spontaneous
  Country: GB (occurrence: GB)
  Receive Date: 20180802
  Receipt Date: 20180802
  Transmission Date: 20181010
  Serious: Yes (Life-Threatening, Disabling, Other)
  Sender: FDA-Public Use
  Company Number: GB-DRREDDYS-GER/UKI/18/0102668

PATIENT
  Age: 46 Year
  Sex: Female
  Weight: 65.31 kg

DRUGS (5)
  1. OMEPRAZOLE. [Suspect]
     Active Substance: OMEPRAZOLE
     Dosage: FOR 18 MONTHS. BUT STILL 40MG JAN TO MARCH 2017 AND JANUARY AND FEBRUARY 2018.
     Route: 048
     Dates: start: 201701, end: 201703
  2. OMEPRAZOLE. [Suspect]
     Active Substance: OMEPRAZOLE
     Indication: HIATUS HERNIA
     Dosage: FOR 18 MONTHS. BUT STILL 40MG JAN TO MARCH 2017 AND JANUARY AND FEBRUARY 2018.
     Route: 048
     Dates: start: 20150412, end: 20180302
  3. ACETYLSALICYLIC ACID [Concomitant]
     Active Substance: ASPIRIN
     Indication: PRODUCT USED FOR UNKNOWN INDICATION
  4. OMEPRAZOLE. [Suspect]
     Active Substance: OMEPRAZOLE
     Route: 048
     Dates: start: 201610
  5. OMEPRAZOLE. [Suspect]
     Active Substance: OMEPRAZOLE
     Dosage: FOR 18 MONTHS. BUT STILL 40MG JAN TO MARCH 2017 AND JANUARY AND FEBRUARY 2018.
     Route: 048
     Dates: start: 201801, end: 201802

REACTIONS (10)
  - Paraesthesia [Recovering/Resolving]
  - Pain in extremity [Recovering/Resolving]
  - Vertigo [Recovering/Resolving]
  - Tic [Recovering/Resolving]
  - Tremor [Recovering/Resolving]
  - Hypoaesthesia [Recovering/Resolving]
  - Magnesium deficiency [Recovering/Resolving]
  - Sensory disturbance [Recovering/Resolving]
  - Muscle spasms [Unknown]
  - Feeling abnormal [Recovering/Resolving]

NARRATIVE: CASE EVENT DATE: 2016
